FAERS Safety Report 15648169 (Version 1)
Quarter: 2018Q4

REPORT INFORMATION
  Report Type: Spontaneous
  Country: IN (occurrence: IN)
  Receive Date: 20181122
  Receipt Date: 20181122
  Transmission Date: 20190205
  Serious: Yes (Death)
  Sender: FDA-Public Use
  Company Number: IN-PFIZER INC-2016552530

PATIENT
  Age: 38 Year
  Sex: Female

DRUGS (2)
  1. LETROZOLE. [Concomitant]
     Active Substance: LETROZOLE
     Dosage: 2.5 MG, 1X/DAY
     Route: 048
     Dates: start: 20161125
  2. PALBACE [Suspect]
     Active Substance: PALBOCICLIB
     Indication: BREAST CANCER METASTATIC
     Dosage: 75 MG, ONCE IN A DAY
     Route: 048
     Dates: start: 20161124

REACTIONS (2)
  - Death [Fatal]
  - Platelet count decreased [Unknown]

NARRATIVE: CASE EVENT DATE: 2017
